FAERS Safety Report 6149356-2 (Version None)
Quarter: 2009Q2

REPORT INFORMATION
  Report Type: 
  Country: None (occurrence: None)
  Receive Date: 20090406
  Receipt Date: 20090406
  Transmission Date: 20091009
  Serious: Yes (Hospitalization)
  Sender: FDA-Public Use
  Company Number: None

PATIENT
  Age: 56 Year
  Sex: Male
  Weight: 124.7392 kg

DRUGS (1)
  1. DICLOFENAC SODIUM [Suspect]
     Indication: INTERVERTEBRAL DISC DEGENERATION
     Dosage: 100MG DAILY PO
     Route: 048
     Dates: start: 20090321, end: 20090329

REACTIONS (4)
  - ABDOMINAL PAIN [None]
  - ABDOMINAL PAIN UPPER [None]
  - DIARRHOEA [None]
  - DIARRHOEA HAEMORRHAGIC [None]
